FAERS Safety Report 9277162 (Version 1)
Quarter: 2013Q2

REPORT INFORMATION
  Report Type: Spontaneous
  Country: US (occurrence: US)
  Receive Date: 20130508
  Receipt Date: 20130508
  Transmission Date: 20140414
  Serious: No
  Sender: FDA-Public Use
  Company Number: US-B.I. PHARMACEUTICALS,INC./RIDGEFIELD-2013-BI-12373BP

PATIENT
  Age: 91 Year
  Sex: Male

DRUGS (5)
  1. PRADAXA [Suspect]
     Indication: ATRIAL FIBRILLATION
     Dosage: 150 MG
     Route: 048
     Dates: start: 20111110
  2. LUTEIN [Concomitant]
     Indication: MACULAR DEGENERATION
     Route: 048
  3. DILATAZIM [Concomitant]
     Indication: HYPERTENSION
     Dosage: 180 MG
     Route: 048
  4. VITAMIN D [Concomitant]
     Indication: RENAL CYST
     Dosage: 1000 U
     Route: 048
  5. LENOXIN [Concomitant]
     Indication: ATRIAL FIBRILLATION
     Dosage: 0.25 MCG
     Route: 058

REACTIONS (3)
  - Pruritus [Not Recovered/Not Resolved]
  - Rash [Not Recovered/Not Resolved]
  - Heart rate increased [Not Recovered/Not Resolved]
